FAERS Safety Report 21664899 (Version 4)
Quarter: 2023Q1

REPORT INFORMATION
  Report Type: Spontaneous
  Country: CO (occurrence: CO)
  Receive Date: 20221130
  Receipt Date: 20230216
  Transmission Date: 20230418
  Serious: Yes (Hospitalization, Other)
  Sender: FDA-Public Use
  Company Number: CO-HORIZON THERAPEUTICS-HZN-2022-009216

PATIENT

DRUGS (1)
  1. INTERFERON GAMMA-1B [Suspect]
     Active Substance: INTERFERON GAMMA-1B
     Indication: Primary immunodeficiency syndrome
     Dosage: 0.0733 ML (0.22 ML, ONCE EVERY 72HRS)
     Route: 058
     Dates: start: 2017

REACTIONS (4)
  - Postoperative wound infection [Recovered/Resolved]
  - Appendicectomy [Recovered/Resolved]
  - Pyrexia [Recovered/Resolved]
  - Off label use [Unknown]

NARRATIVE: CASE EVENT DATE: 20221106
